FAERS Safety Report 5677360-7 (Version None)
Quarter: 2008Q1

REPORT INFORMATION
  Report Type: 
  Country: None (occurrence: None)
  Receive Date: 20080324
  Receipt Date: 20080313
  Transmission Date: 20080703
  Serious: Yes (Hospitalization, Other)
  Sender: FDA-Public Use
  Company Number: US-PFIZER INC-2008023332

PATIENT
  Sex: Male

DRUGS (5)
  1. GEODON [Suspect]
     Indication: BIPOLAR DISORDER
     Dates: start: 20061001, end: 20080310
  2. CELEXA [Concomitant]
  3. XANAX [Concomitant]
     Indication: PANIC ATTACK
  4. FOLATE [Concomitant]
  5. VITAMIN B-12 [Concomitant]

REACTIONS (8)
  - ARRHYTHMIA [None]
  - BLOOD POTASSIUM DECREASED [None]
  - BLOOD PRESSURE INCREASED [None]
  - CEREBROVASCULAR ACCIDENT [None]
  - DEHYDRATION [None]
  - HAEMATOCRIT INCREASED [None]
  - MOOD SWINGS [None]
  - UNEVALUABLE EVENT [None]
